FAERS Safety Report 23132089 (Version 1)
Quarter: 2023Q4

REPORT INFORMATION
  Report Type: Spontaneous
  Country: TW (occurrence: TW)
  Receive Date: 20231101
  Receipt Date: 20231101
  Transmission Date: 20240110
  Serious: Yes (Hospitalization, Other)
  Sender: FDA-Public Use
  Company Number: TW-CHUGAI-2023038242

PATIENT
  Age: 40 Year
  Sex: Female

DRUGS (3)
  1. ENSPRYNG [Suspect]
     Active Substance: SATRALIZUMAB-MWGE
     Indication: Neuromyelitis optica spectrum disorder
     Dosage: 120 MILLIGRAM
     Route: 058
     Dates: start: 20210201
  2. PREDNISOLONE [Concomitant]
     Active Substance: PREDNISOLONE
     Indication: Neuromyelitis optica spectrum disorder
     Dosage: 10 MILLIGRAM, QD
  3. AZATHIOPRINE [Concomitant]
     Active Substance: AZATHIOPRINE
     Indication: Neuromyelitis optica spectrum disorder
     Dosage: 75 MILLIGRAM

REACTIONS (4)
  - Neuromyelitis optica spectrum disorder [Unknown]
  - Hiccups [Unknown]
  - Visual impairment [Unknown]
  - Hordeolum [Unknown]

NARRATIVE: CASE EVENT DATE: 20230401
